FAERS Safety Report 4469881-X (Version None)
Quarter: 2004Q4

REPORT INFORMATION
  Report Type: 
  Country: None (occurrence: None)
  Receive Date: 20041005
  Receipt Date: 20040923
  Transmission Date: 20050328
  Serious: Yes (Hospitalization)
  Sender: FDA-Public Use
  Company Number: 2004235130US

PATIENT
  Age: 35 Year
  Sex: Female
  Weight: 136.1 kg

DRUGS (18)
  1. ELLENCE [Suspect]
     Indication: BREAST CANCER
     Dosage: 165 MG, CYCLE 3, UNK
     Dates: start: 20040914, end: 20040914
  2. COMPARATOR-DOCETAXEL(DOCETAXEL) INJECTION [Suspect]
     Indication: BREAST CANCER
     Dosage: 165 MG, CYCLE 3, UNK
     Dates: start: 20040914, end: 20040914
  3. CYCLOPHOSPHAMIDE [Suspect]
     Indication: BREAST CANCER
     Dosage: 1100 MG, CYCLE 3, UNK
     Dates: start: 20040914, end: 20040914
  4. PROCIT (ERYTHROPOIETIN) [Concomitant]
  5. ANZEMET (DOLASETRON MESILATE) [Concomitant]
  6. COMPARATOR-DOCETAXEL(DOCETAXEL) INJECTION [Suspect]
     Indication: BREAST CANCER
     Dosage: 165 MG, CYCLE 3, UNK
     Dates: start: 20040914, end: 20040914
  7. CYCLOPHOSPHAMIDE [Suspect]
     Indication: BREAST CANCER
     Dosage: 1100 MG, CYCLE 3
     Dates: start: 20040914, end: 20040914
  8. PROCRIT (ERYTHROPOIETIN0 [Concomitant]
  9. ANZEMET (DOLASETRON MESILATE) [Concomitant]
  10. DECADRON [Concomitant]
  11. BENADRYL (DIPHENHYDRAMIEN HYDROCHLORIDE) [Concomitant]
  12. TAGAMET [Concomitant]
  13. COMPAZINE [Concomitant]
  14. WELLBUTRIN [Concomitant]
  15. DARVOCET-N 100 [Concomitant]
  16. K-TAB [Concomitant]
  17. EFEXOR (VENLAFACINE HYDROCHLORIDE) [Concomitant]
  18. ATIVAN [Concomitant]

REACTIONS (7)
  - ELECTROCARDIOGRAM T WAVE ABNORMAL [None]
  - HAEMATOCRIT DECREASED [None]
  - HAEMOGLOBIN DECREASED [None]
  - PLATELET COUNT INCREASED [None]
  - PYREXIA [None]
  - SYNCOPE [None]
  - WHITE BLOOD CELL COUNT DECREASED [None]
